FAERS Safety Report 5489334-X (Version None)
Quarter: 2007Q4

REPORT INFORMATION
  Report Type: 
  Country: None (occurrence: None)
  Receive Date: 20071018
  Receipt Date: 20071001
  Transmission Date: 20080405
  Serious: Yes (Disabling)
  Sender: FDA-Public Use
  Company Number: DK-ALLERGAN-0708813US

PATIENT
  Sex: Male

DRUGS (2)
  1. BOTOX [Suspect]
     Indication: INCONTINENCE
     Dosage: UNK, SINGLE
     Route: 023
     Dates: start: 20060915, end: 20060915
  2. LYRICA [Concomitant]
     Indication: NEURALGIA
     Route: 048

REACTIONS (4)
  - ACTIVITIES OF DAILY LIVING IMPAIRED [None]
  - INCORRECT ROUTE OF DRUG ADMINISTRATION [None]
  - MUSCULAR WEAKNESS [None]
  - MYALGIA [None]
